FAERS Safety Report 8756063 (Version 5)
Quarter: 2013Q2

REPORT INFORMATION
  Report Type: Spontaneous
  Country: US (occurrence: US)
  Receive Date: 20120828
  Receipt Date: 20130401
  Transmission Date: 20140414
  Serious: Yes (Other)
  Sender: FDA-Public Use
  Company Number: US-AMGEN-USASP2012043818

PATIENT
  Age: 49 Year
  Sex: Male
  Weight: 91.2 kg

DRUGS (13)
  1. ARANESP [Suspect]
     Indication: ANAEMIA
     Dosage: UNK
  2. EPOGEN [Suspect]
     Dosage: UNK
     Dates: start: 2002, end: 2004
  3. SENSIPAR [Concomitant]
     Dosage: UNK
  4. LEXAPRO [Concomitant]
     Dosage: UNK
  5. REMERON [Concomitant]
     Dosage: UNK
  6. ALLOPURINOL [Concomitant]
     Dosage: UNK
  7. LIPITOR [Concomitant]
  8. ASPIRIN [Concomitant]
     Dosage: UNK
  9. RENAPLEX [Concomitant]
     Dosage: UNK
  10. LANOXIN [Concomitant]
     Dosage: UNK
  11. TUMS                               /00193601/ [Concomitant]
  12. FISH OIL [Concomitant]
     Dosage: UNK
  13. RENAGEL                            /01459901/ [Concomitant]

REACTIONS (3)
  - Haemoglobin decreased [Unknown]
  - Therapeutic response decreased [Unknown]
  - Anti-erythropoietin antibody positive [Unknown]
